FAERS Safety Report 22334185 (Version 1)
Quarter: 2023Q2

REPORT INFORMATION
  Report Type: Spontaneous
  Country: ES (occurrence: ES)
  Receive Date: 20230517
  Receipt Date: 20230517
  Transmission Date: 20230722
  Serious: Yes (Life-Threatening, Hospitalization)
  Sender: FDA-Public Use
  Company Number: None

PATIENT
  Age: 58 Year
  Sex: Female

DRUGS (2)
  1. ETOPOSIDE [Interacting]
     Active Substance: ETOPOSIDE
     Indication: Lung neoplasm malignant
     Dosage: 159 MILLIGRAMS (100MG/ML), ETOPOSIDO (518A)
     Route: 065
     Dates: start: 20230210
  2. CISPLATIN [Interacting]
     Active Substance: CISPLATIN
     Indication: Lung neoplasm malignant
     Dosage: 159 MILLIGRAMS (100MG/ML) REDUCTION 03/27/23 119 MILLIGRAMS (72MG/ML), CISPLATINO (644A)
     Route: 065
     Dates: start: 20230210, end: 20230308

REACTIONS (2)
  - Pancytopenia [Recovered/Resolved]
  - Drug interaction [Unknown]

NARRATIVE: CASE EVENT DATE: 20230317
